FAERS Safety Report 8899224 (Version 1)
Quarter: 2012Q4

REPORT INFORMATION
  Report Type: 
  Country: US (occurrence: US)
  Receive Date: 20121108
  Receipt Date: 20121108
  Transmission Date: 20130627
  Serious: No
  Sender: FDA-Public Use
  Company Number: US-AMGEN-USASP2012027547

PATIENT
  Age: 38 Year
  Sex: Female
  Weight: 113.38 kg

DRUGS (12)
  1. ENBREL [Suspect]
     Indication: RHEUMATOID ARTHRITIS
     Dosage: 50 mg, qwk
     Route: 058
  2. HUMIRA [Concomitant]
     Dosage: 40 mg, UNK
     Route: 058
  3. METHOTREXATE [Concomitant]
     Dosage: 2.5 mg, UNK
     Route: 048
  4. SULFASALAZIN [Concomitant]
     Dosage: 500 mg, UNK
     Route: 048
  5. LISINOPRIL [Concomitant]
     Dosage: 10 mg, UNK
     Route: 048
  6. AMLODIPINE [Concomitant]
     Dosage: 10 mg, UNK
     Route: 048
  7. LEXAPRO [Concomitant]
     Dosage: 10 mg, UNK
     Route: 048
  8. ABILIFY [Concomitant]
     Dosage: 10 mg, UNK
     Route: 048
  9. KLONOPIN [Concomitant]
     Dosage: 0.5 mg, UNK
     Route: 048
  10. TRAZODONE [Concomitant]
     Dosage: 50 mg, UNK
     Route: 048
  11. IRON [Concomitant]
     Dosage: 25 mg, UNK
     Route: 048
  12. MULTI-VIT [Concomitant]
     Dosage: UNK

REACTIONS (1)
  - Drug ineffective [Unknown]
